FAERS Safety Report 5814427-4 (Version None)
Quarter: 2008Q3

REPORT INFORMATION
  Report Type: 
  Country: None (occurrence: None)
  Receive Date: 20080718
  Receipt Date: 20080709
  Transmission Date: 20090109
  Serious: Yes (Other)
  Sender: FDA-Public Use
  Company Number: PHHY2008CA13705

PATIENT

DRUGS (3)
  1. IMATINIB MESYLATE [Suspect]
     Indication: CHRONIC MYELOID LEUKAEMIA
     Dosage: 800 MG, DAILY
     Route: 048
     Dates: start: 20020301
  2. TENOFOVIR [Concomitant]
  3. HYDROXYUREA [Concomitant]
     Dosage: 1 MG DAILY
     Route: 048

REACTIONS (5)
  - CYTOGENETIC ANALYSIS ABNORMAL [None]
  - DISEASE PROGRESSION [None]
  - HEPATIC ENZYME INCREASED [None]
  - HEPATITIS B [None]
  - WHITE BLOOD CELL COUNT INCREASED [None]
